FAERS Safety Report 9547659 (Version 4)
Quarter: 2013Q4

REPORT INFORMATION
  Report Type: Spontaneous
  Country: JP (occurrence: JP)
  Receive Date: 20130924
  Receipt Date: 20131226
  Transmission Date: 20140711
  Serious: Yes (Hospitalization)
  Sender: FDA-Public Use
  Company Number: JP-009507513-2010SP065139

PATIENT
  Age: 62 Year
  Sex: Female
  Weight: 50 kg

DRUGS (9)
  1. PEGINTRON [Suspect]
     Indication: HEPATIC CIRRHOSIS
     Dosage: 40 MICROGRAM, QD
     Route: 058
     Dates: start: 20101005, end: 20101122
  2. PEGINTRON [Suspect]
     Indication: CHRONIC HEPATITIS C
  3. REBETOL [Suspect]
     Indication: HEPATIC CIRRHOSIS
     Dosage: 200 MGX1 400 MGX1, QD
     Route: 048
     Dates: start: 20101005, end: 20101130
  4. REBETOL [Suspect]
     Indication: CHRONIC HEPATITIS C
  5. MOBIC [Suspect]
     Dosage: 10 MG, QD
     Route: 048
     Dates: start: 20101005, end: 20101115
  6. GASTER D [Suspect]
     Dosage: 10 MG, QD
     Route: 048
     Dates: start: 20101005, end: 20101115
  7. LOXONIN [Concomitant]
     Dosage: 60 MG, QD
     Route: 048
     Dates: start: 20101116, end: 20101121
  8. PROMETHAZINE HYDROCHLORIDE [Concomitant]
     Dosage: 10 MG, BID
     Route: 048
     Dates: start: 20101116
  9. PROTECADIN [Concomitant]
     Route: 048

REACTIONS (2)
  - Arthritis bacterial [Recovering/Resolving]
  - Joint fluid drainage [Recovered/Resolved]
